FAERS Safety Report 6234756-2 (Version None)
Quarter: 2009Q2

REPORT INFORMATION
  Report Type: 
  Country: None (occurrence: None)
  Receive Date: 20090618
  Receipt Date: 20090609
  Transmission Date: 20091009
  Serious: Yes (Other)
  Sender: FDA-Public Use
  Company Number: DE-ASTRAZENECA-2009PK01457

PATIENT
  Age: 52 Year
  Sex: Female

DRUGS (1)
  1. XYLOCAINE [Suspect]
     Indication: TOOTH EXTRACTION

REACTIONS (2)
  - ERYTHEMA [None]
  - VASCULITIS [None]
